FAERS Safety Report 6266741-9 (Version None)
Quarter: 2009Q3

REPORT INFORMATION
  Report Type: 
  Country: None (occurrence: None)
  Receive Date: 20090714
  Receipt Date: 20070403
  Transmission Date: 20100115
  Serious: Yes (Hospitalization)
  Sender: FDA-Public Use
  Company Number: US-ASTRAZENECA-2006UW06039

PATIENT
  Age: 49 Year
  Sex: Female
  Weight: 91.6 kg

DRUGS (22)
  1. SEROQUEL [Suspect]
     Indication: BIPOLAR DISORDER
     Route: 048
     Dates: start: 20010101, end: 20050101
  2. SEROQUEL [Suspect]
     Dosage: 400 TO 800 MG
     Route: 048
     Dates: start: 20020405
  3. ZYPREXA [Concomitant]
     Dosage: 10 TO 20 MG TABLET
     Route: 048
     Dates: start: 20020101, end: 20030101
  4. ZYPREXA [Concomitant]
     Route: 048
     Dates: start: 20020401
  5. ABILIFY [Concomitant]
     Dates: start: 20050101
  6. STELAZINE [Concomitant]
  7. EFFEXOR XR [Concomitant]
     Dates: start: 20040101
  8. TRAZODONE HCL [Concomitant]
     Dates: start: 20060101
  9. VICODIN [Concomitant]
     Indication: PAIN
     Route: 048
     Dates: start: 20021202
  10. CARDIZEM [Concomitant]
     Dosage: 240 TO 300 MG
     Route: 048
     Dates: start: 19990722
  11. MAXZIDE [Concomitant]
     Dosage: 75/50 MG
     Route: 048
     Dates: start: 20021202
  12. PROTONIX [Concomitant]
     Route: 048
     Dates: start: 20020427
  13. BENTYL [Concomitant]
     Route: 048
     Dates: start: 20021202
  14. PAXIL [Concomitant]
     Route: 048
     Dates: start: 20020403
  15. PREMPRO [Concomitant]
     Dosage: 0.625/2.5 MG
     Route: 048
     Dates: start: 19970722
  16. DEPAKOTE [Concomitant]
     Dosage: 2000 MG TWICE DAILY, 500 MG FOUR TABLETS TWICE DAILY
     Route: 048
     Dates: start: 20020426, end: 20050101
  17. ZOLOFT [Concomitant]
     Dosage: 100 TO 200 MG
     Route: 048
     Dates: start: 19941104
  18. BUSPAR [Concomitant]
     Route: 048
     Dates: start: 20001002
  19. ELAVIL [Concomitant]
     Indication: DEPRESSION
     Dosage: 100 TO 150 MG
     Route: 048
     Dates: start: 19941104
  20. PRILOSEC [Concomitant]
     Dosage: 20 TO 100 MG
     Route: 048
     Dates: start: 19970722
  21. PLAVIX [Concomitant]
     Route: 048
     Dates: start: 20050908
  22. ATIVAN [Concomitant]
     Route: 048
     Dates: start: 19941104, end: 20050908

REACTIONS (8)
  - ARTHRITIS [None]
  - DIABETES MELLITUS [None]
  - GALLBLADDER OPERATION [None]
  - HYPERLIPIDAEMIA [None]
  - JOINT SWELLING [None]
  - SPINAL OSTEOARTHRITIS [None]
  - SPONDYLITIS [None]
  - TYPE 2 DIABETES MELLITUS [None]
